FAERS Safety Report 15822904 (Version 1)
Quarter: 2019Q1

REPORT INFORMATION
  Report Type: Spontaneous
  Country: GR (occurrence: GR)
  Receive Date: 20190114
  Receipt Date: 20190114
  Transmission Date: 20190417
  Serious: Yes (Hospitalization, Other)
  Sender: FDA-Public Use
  Company Number: GR-SHIRE-GR201850332

PATIENT

DRUGS (2)
  1. 476 (MESALAZINE/MESALAMINE) [Suspect]
     Active Substance: MESALAMINE
     Indication: COLITIS ULCERATIVE
     Route: 065
  2. METHYLPREDNISOLONE. [Suspect]
     Active Substance: METHYLPREDNISOLONE
     Indication: COLITIS ULCERATIVE
     Route: 065

REACTIONS (2)
  - Condition aggravated [Recovering/Resolving]
  - Colitis ulcerative [Recovering/Resolving]
